FAERS Safety Report 10779908 (Version 1)
Quarter: 2015Q1

REPORT INFORMATION
  Report Type: Spontaneous
  Country: MW (occurrence: None)
  Receive Date: 20150206
  Receipt Date: 20150206
  Transmission Date: 20150721
  Serious: Yes (Other)
  Sender: FDA-Public Use
  Company Number: MW2015GSK014630

PATIENT
  Age: 36 Year
  Sex: Female

DRUGS (3)
  1. REYATAZ [Suspect]
     Active Substance: ATAZANAVIR SULFATE
     Indication: HIV INFECTION
     Dosage: 400 MG, U, ORAL
     Route: 048
     Dates: start: 20100106, end: 20141029
  2. LAMIVUDINE AND ZIDOVUDINE [Suspect]
     Active Substance: LAMIVUDINE\ZIDOVUDINE
     Indication: HIV INFECTION
     Dosage: 2 DF, U, ORAL
     Route: 048
     Dates: start: 20090109
  3. KALETRA [Suspect]
     Active Substance: LOPINAVIR\RITONAVIR
     Indication: HIV INFECTION
     Dosage: 4 DF, U, ORAL
     Route: 048
     Dates: start: 20141029

REACTIONS (4)
  - Exposure during pregnancy [None]
  - Abortion spontaneous [None]
  - Anaphylactic reaction [None]
  - Arthropod sting [None]

NARRATIVE: CASE EVENT DATE: 20141109
